FAERS Safety Report 17179007 (Version 1)
Quarter: 2019Q4

REPORT INFORMATION
  Report Type: Spontaneous
  Country: SE (occurrence: SE)
  Receive Date: 20191219
  Receipt Date: 20191219
  Transmission Date: 20200122
  Serious: Yes (Hospitalization)
  Sender: FDA-Public Use
  Company Number: SE-ACCORD-165914

PATIENT
  Age: 15 Year
  Sex: Female

DRUGS (4)
  1. SERTRALINE [Suspect]
     Active Substance: SERTRALINE HYDROCHLORIDE
     Dosage: 5 ST  50 MG
     Dates: start: 20180128, end: 20180128
  2. ATARAX [Suspect]
     Active Substance: HYDROXYZINE HYDROCHLORIDE
     Dosage: 5 ST
     Dates: start: 20180128, end: 20180128
  3. MELATONIN [Suspect]
     Active Substance: MELATONIN
     Dosage: UNCLEAR AMOUNT
     Dates: start: 20180128, end: 20180128
  4. PROPAVAN [Suspect]
     Active Substance: PROPIOMAZINE
     Dosage: 20 ST
     Route: 048
     Dates: start: 20180128, end: 20180128

REACTIONS (4)
  - Intentional overdose [Unknown]
  - Fatigue [Unknown]
  - Vomiting [Unknown]
  - Intentional self-injury [Unknown]

NARRATIVE: CASE EVENT DATE: 20180128
